APPROVED DRUG PRODUCT: SOLU-MEDROL
Active Ingredient: METHYLPREDNISOLONE SODIUM SUCCINATE
Strength: EQ 125MG BASE/VIAL
Dosage Form/Route: INJECTABLE;INJECTION
Application: N011856 | Product #004 | TE Code: AP
Applicant: PHARMACIA AND UPJOHN CO
Approved: Approved Prior to Jan 1, 1982 | RLD: Yes | RS: Yes | Type: RX